FAERS Safety Report 5474732-0 (Version None)
Quarter: 2007Q3

REPORT INFORMATION
  Report Type: 
  Country: None (occurrence: None)
  Receive Date: 20070928
  Receipt Date: 20070913
  Transmission Date: 20080115
  Serious: Yes (Hospitalization)
  Sender: FDA-Public Use
  Company Number: 2006001760

PATIENT
  Age: 76 Year
  Sex: Male

DRUGS (3)
  1. ERLOTINIB (ERLOTINIB HCI) (125 MILLIGRAM, TABLET) (ERLOTINIB HCI) [Suspect]
     Indication: NON-SMALL CELL LUNG CANCER
     Dosage: 125 MG QD, ORAL
     Route: 048
     Dates: start: 20060504, end: 20060810
  2. KETOPROFEN [Suspect]
     Dates: start: 20051027
  3. STEROIDS [Suspect]
     Dates: start: 20051027

REACTIONS (2)
  - GASTRITIS [None]
  - GASTROENTERITIS [None]
